FAERS Safety Report 9393528 (Version 2)
Quarter: 2013Q3

REPORT INFORMATION
  Report Type: Report from Study
  Country: JP (occurrence: JP)
  Receive Date: 20130710
  Receipt Date: 20130731
  Transmission Date: 20140515
  Serious: Yes (Death, Life-Threatening)
  Sender: FDA-Public Use
  Company Number: JP-BRISTOL-MYERS SQUIBB COMPANY-19088954

PATIENT
  Age: 90 Year
  Sex: Female
  Weight: 52 kg

DRUGS (12)
  1. ABILIFY [Suspect]
     Indication: DEMENTIA ALZHEIMER^S TYPE
     Route: 048
     Dates: start: 20120910, end: 20130328
  2. ZOPICLONE [Suspect]
     Route: 048
     Dates: start: 20010522, end: 20130328
  3. QUETIAPINE [Suspect]
     Route: 048
     Dates: start: 20050422, end: 20130328
  4. GALANTAMINE HYDROBROMIDE [Concomitant]
     Dates: start: 20110711, end: 20130328
  5. MEMANTINE HCL [Concomitant]
     Dosage: TABS
     Dates: start: 20120514, end: 20130328
  6. DILTIAZEM HCL [Concomitant]
  7. AZOSEMIDE [Concomitant]
     Dosage: TABS
  8. WARFARIN POTASSIUM [Concomitant]
  9. CANDESARTAN CILEXETIL [Concomitant]
     Dosage: TABS
  10. CETIRIZINE HCL [Concomitant]
  11. MAGNESIUM OXIDE [Concomitant]
  12. THEOPHYLLINE [Concomitant]

REACTIONS (4)
  - Pneumonia [Fatal]
  - Pleurisy [Fatal]
  - Choking [Fatal]
  - Skeletal injury [Unknown]
